FAERS Safety Report 9139548 (Version 2)
Quarter: 2013Q1

REPORT INFORMATION
  Report Type: Other
  Country: US (occurrence: US)
  Receive Date: 20130305
  Receipt Date: 20130311
  Transmission Date: 20140127
  Serious: Yes (Other)
  Sender: FDA-Public Use
  Company Number: US-NAPPMUNDI-USA-2013-0099376

PATIENT
  Age: 34 Year
  Sex: Male

DRUGS (9)
  1. BETADINE [Suspect]
  2. ATROPINE [Concomitant]
     Indication: PRODUCT USED FOR UNKNOWN INDICATION
     Route: 030
  3. MEPERIDINE                         /00016301/ [Concomitant]
     Indication: PRODUCT USED FOR UNKNOWN INDICATION
  4. DEXAMETHASONE [Concomitant]
     Indication: PRODUCT USED FOR UNKNOWN INDICATION
     Dosage: 4 MG, SINGLE
     Route: 042
  5. PENICILLIN G                       /00000901/ [Concomitant]
     Indication: PRODUCT USED FOR UNKNOWN INDICATION
     Dosage: 2000000 UNIT, SINGLE
     Route: 042
  6. THIOPENTAL SODIUM [Concomitant]
     Indication: ANAESTHESIA
  7. HALOTHANE [Concomitant]
     Indication: ANAESTHESIA
  8. NITROUS OXIDE [Concomitant]
     Indication: ANAESTHESIA
  9. OXYGEN [Concomitant]
     Indication: ANAESTHESIA

REACTIONS (2)
  - Accidental exposure to product [Recovered/Resolved]
  - Pneumonia aspiration [Recovered/Resolved]
